FAERS Safety Report 17744199 (Version 1)
Quarter: 2020Q2

REPORT INFORMATION
  Report Type: Report from Study
  Country: IT (occurrence: IT)
  Receive Date: 20200505
  Receipt Date: 20200505
  Transmission Date: 20200714
  Serious: Yes (Hospitalization)
  Sender: FDA-Public Use
  Company Number: IT-ACCORD-180736

PATIENT
  Age: 80 Year
  Sex: Female
  Weight: 0 kg

DRUGS (1)
  1. CLOPIDOGREL [Suspect]
     Active Substance: CLOPIDOGREL BISULFATE
     Indication: THROMBOSIS PROPHYLAXIS
     Route: 048
     Dates: start: 20200102, end: 20200303

REACTIONS (4)
  - Bradyphrenia [Recovered/Resolved]
  - Hypokinesia [Recovered/Resolved]
  - Subdural haematoma [Recovered/Resolved]
  - Headache [Recovered/Resolved]

NARRATIVE: CASE EVENT DATE: 20200303
